FAERS Safety Report 10209692 (Version 2)
Quarter: 2014Q2

REPORT INFORMATION
  Report Type: Spontaneous
  Country: US (occurrence: US)
  Receive Date: 20140602
  Receipt Date: 20140611
  Transmission Date: 20141212
  Serious: No
  Sender: FDA-Public Use
  Company Number: US-BIOGENIDEC-2014BI049997

PATIENT
  Sex: Male

DRUGS (1)
  1. AVONEX [Suspect]
     Indication: MULTIPLE SCLEROSIS
     Route: 030
     Dates: start: 20091211

REACTIONS (3)
  - Stress [Not Recovered/Not Resolved]
  - Optic neuritis [Not Recovered/Not Resolved]
  - Eye pain [Not Recovered/Not Resolved]
